FAERS Safety Report 22618047 (Version 1)
Quarter: 2023Q2

REPORT INFORMATION
  Report Type: Spontaneous
  Country: US (occurrence: US)
  Receive Date: 20230620
  Receipt Date: 20230620
  Transmission Date: 20230721
  Serious: Yes (Death, Hospitalization, Other)
  Sender: FDA-Public Use
  Company Number: US-AJANTA-2023AJA00129

PATIENT
  Age: 53 Year
  Sex: Male

DRUGS (8)
  1. METFORMIN HYDROCHLORIDE [Suspect]
     Active Substance: METFORMIN HYDROCHLORIDE
     Indication: Type 2 diabetes mellitus
     Dosage: IMMEDIATE RELEASE TABLET
     Route: 048
  2. LISINOPRIL [Suspect]
     Active Substance: LISINOPRIL
     Indication: Product used for unknown indication
  3. GABAPENTIN [Suspect]
     Active Substance: GABAPENTIN
     Indication: Product used for unknown indication
  4. BACLOFEN [Suspect]
     Active Substance: BACLOFEN
     Indication: Product used for unknown indication
  5. BENZTROPINE [Suspect]
     Active Substance: BENZTROPINE
     Indication: Product used for unknown indication
  6. ESCITALOPRAM [Suspect]
     Active Substance: ESCITALOPRAM OXALATE
     Indication: Product used for unknown indication
  7. NICOTINE [Suspect]
     Active Substance: NICOTINE
     Indication: Product used for unknown indication
  8. CAFFEINE [Suspect]
     Active Substance: CAFFEINE
     Indication: Product used for unknown indication

REACTIONS (9)
  - Anal incontinence [Fatal]
  - Depression [Fatal]
  - Unresponsive to stimuli [Fatal]
  - Brain injury [Fatal]
  - Brain oedema [Fatal]
  - Shock [Fatal]
  - Lactic acidosis [Fatal]
  - Intentional overdose [Fatal]
  - Toxicity to various agents [Fatal]
